FAERS Safety Report 6507282-0 (Version None)
Quarter: 2009Q4

REPORT INFORMATION
  Report Type: 
  Country: None (occurrence: None)
  Receive Date: 20091221
  Receipt Date: 20091216
  Transmission Date: 20100525
  Serious: Yes (Other)
  Sender: FDA-Public Use
  Company Number: PHHY2009DE56467

PATIENT
  Sex: Female
  Weight: 68 kg

DRUGS (4)
  1. CGS 20267 T30748+ [Suspect]
     Indication: BREAST CANCER
     Dosage: 2.5 MG DAILY
     Route: 048
     Dates: start: 20090922
  2. METFORMIN HCL [Concomitant]
     Dosage: UNK
     Dates: start: 20000101
  3. AMLODIPINE [Concomitant]
     Dosage: UNK
     Dates: start: 20000101
  4. OLMESARTAN MEDOXOMIL AND HYDROCHLOROTHIZIDE [Concomitant]
     Dosage: UNK
     Dates: start: 20050101

REACTIONS (2)
  - BLOOD GLUCOSE INCREASED [None]
  - HYPERTENSION [None]
